FAERS Safety Report 5013204-4 (Version None)
Quarter: 2006Q2

REPORT INFORMATION
  Report Type: 
  Country: None (occurrence: None)
  Receive Date: 20060530
  Receipt Date: 20060320
  Transmission Date: 20061013
  Serious: Yes (Other)
  Sender: FDA-Public Use
  Company Number: US-GLAXOSMITHKLINE-A0598230A

PATIENT
  Age: 49 Year
  Sex: Female
  Weight: 63.2 kg

DRUGS (5)
  1. WELLBUTRIN XL [Suspect]
     Indication: DRUG USE FOR UNKNOWN INDICATION
     Route: 048
     Dates: start: 20060301, end: 20060319
  2. BENADRYL [Concomitant]
     Indication: SLEEP DISORDER
  3. UNISOM [Concomitant]
     Indication: SLEEP DISORDER
  4. SAM-E [Concomitant]
     Dates: start: 20060116
  5. LUPRON DEPOT [Concomitant]
     Dates: start: 20050208

REACTIONS (3)
  - PRURITUS [None]
  - RASH [None]
  - URTICARIA [None]
